FAERS Safety Report 23213386 (Version 1)
Quarter: 2023Q4

REPORT INFORMATION
  Report Type: Report from Study
  Country: ES (occurrence: ES)
  Receive Date: 20231121
  Receipt Date: 20231121
  Transmission Date: 20240110
  Serious: Yes (Hospitalization, Other)
  Sender: FDA-Public Use
  Company Number: ES-SA-SAC20230801001107

PATIENT
  Age: 71 Year
  Sex: Male
  Weight: 74 kg

DRUGS (5)
  1. INSULIN GLARGINE [Suspect]
     Active Substance: INSULIN GLARGINE
     Indication: Type 2 diabetes mellitus
     Dosage: 18 DOSAGE FORM (18 U)
     Route: 058
  2. INSULIN GLARGINE [Suspect]
     Active Substance: INSULIN GLARGINE
     Dosage: 20 INTERNATIONAL UNIT
     Route: 058
     Dates: start: 20230317
  3. SINEMET [Concomitant]
     Active Substance: CARBIDOPA\LEVODOPA
     Dosage: UNK
     Route: 065
  4. PANTOPRAZOLE [Concomitant]
     Active Substance: PANTOPRAZOLE
     Dosage: UNK
     Route: 042
  5. INSULIN NOS [Concomitant]
     Active Substance: INSULIN NOS
     Dosage: FAST-ACTING INSULIN
     Route: 065

REACTIONS (7)
  - Colitis ulcerative [Recovering/Resolving]
  - Renal failure [Recovered/Resolved]
  - Diarrhoea [Recovered/Resolved]
  - Hypotension [Unknown]
  - Weight decreased [Recovering/Resolving]
  - Weight fluctuation [Not Recovered/Not Resolved]
  - Blood glucose increased [Recovered/Resolved]
